FAERS Safety Report 9153116 (Version 1)
Quarter: 2013Q1

REPORT INFORMATION
  Report Type: Spontaneous
  Country: US (occurrence: US)
  Receive Date: 20130311
  Receipt Date: 20130311
  Transmission Date: 20140127
  Serious: No
  Sender: FDA-Public Use
  Company Number: US-009507513-1303USA001374

PATIENT
  Age: 49 Year
  Sex: Male

DRUGS (6)
  1. PEGINTRON [Suspect]
     Indication: LIVER DISORDER
     Dosage: ONE PEN A WEEK
     Dates: start: 20121011
  2. RIBAVIRIN [Suspect]
     Route: 048
  3. NEURONTIN [Concomitant]
  4. IBUPROFEN [Concomitant]
  5. OXYCODONE [Concomitant]
  6. TYLENOL [Concomitant]

REACTIONS (9)
  - Immune system disorder [Not Recovered/Not Resolved]
  - Throat lesion [Not Recovered/Not Resolved]
  - Pyrexia [Not Recovered/Not Resolved]
  - Nausea [Not Recovered/Not Resolved]
  - Alopecia [Not Recovered/Not Resolved]
  - Weight decreased [Not Recovered/Not Resolved]
  - Abscess [Not Recovered/Not Resolved]
  - Infection [Not Recovered/Not Resolved]
  - Product quality issue [Unknown]
